FAERS Safety Report 24646415 (Version 1)
Quarter: 2024Q4

REPORT INFORMATION
  Report Type: Spontaneous
  Country: US (occurrence: US)
  Receive Date: 20241121
  Receipt Date: 20241121
  Transmission Date: 20250115
  Serious: Yes (Other)
  Sender: AMGEN
  Company Number: US-AMGEN-USASP2024228807

PATIENT
  Age: 71 Year
  Sex: Female

DRUGS (2)
  1. PREDNISONE [Suspect]
     Active Substance: PREDNISONE
     Indication: Rheumatoid arthritis
     Dosage: UNK
     Route: 065
  2. PREDNISONE [Suspect]
     Active Substance: PREDNISONE
     Dosage: UNK, DOSE REDUCED
     Route: 065

REACTIONS (6)
  - Knee arthroplasty [Recovered/Resolved]
  - Septic shock [Recovered/Resolved]
  - Renal tubular injury [Recovered/Resolved]
  - Postoperative renal failure [Recovered/Resolved]
  - Device related infection [Recovered/Resolved]
  - Impaired healing [Recovered/Resolved]
